FAERS Safety Report 8622538-3 (Version None)
Quarter: 2012Q3

REPORT INFORMATION
  Report Type: 
  Country: None (occurrence: None)
  Receive Date: 20120827
  Receipt Date: 20120824
  Transmission Date: 20120928
  Serious: No
  Sender: FDA-Public Use
  Company Number: US-PFIZER INC-2012208778

PATIENT
  Age: 86 Year
  Sex: Female
  Weight: 61.224 kg

DRUGS (5)
  1. ZOLOFT [Suspect]
     Dosage: 100 MG, 1X/DAY
     Route: 048
     Dates: start: 20110801
  2. ZETIA [Concomitant]
     Dosage: 10 MG, 1X/DAY
  3. AMLODIPINE [Concomitant]
     Indication: HYPERTENSION
     Dosage: 3.5 MG, UNK
  4. ASPIRIN [Concomitant]
     Dosage: UNK
  5. ZOLOFT [Suspect]
     Indication: DEPRESSION
     Dosage: 50 MG, 1X/DAY
     Route: 048
     Dates: start: 20040101, end: 20110801

REACTIONS (2)
  - EPISTAXIS [None]
  - DRUG EFFECT DECREASED [None]
